FAERS Safety Report 8708932 (Version 3)
Quarter: 2013Q1

REPORT INFORMATION
  Report Type: Spontaneous
  Country: US (occurrence: US)
  Receive Date: 20120806
  Receipt Date: 20130103
  Transmission Date: 20140127
  Serious: Yes (Hospitalization, Other)
  Sender: FDA-Public Use
  Company Number: US-009507513-1208USA000234

PATIENT
  Sex: 0

DRUGS (3)
  1. NUVARING [Suspect]
     Indication: CONTRACEPTION
     Dosage: UNK
     Dates: start: 200511, end: 200512
  2. NUVARING [Suspect]
     Dosage: UNK
     Dates: start: 20070611, end: 200804
  3. NUVARING [Suspect]
     Dosage: UNK
     Dates: start: 20100707, end: 20100921

REACTIONS (7)
  - Abortion spontaneous [Unknown]
  - Pulmonary embolism [Recovered/Resolved with Sequelae]
  - Uterine dilation and curettage [Unknown]
  - Vulvovaginal candidiasis [Unknown]
  - Back pain [Unknown]
  - Hypercoagulation [Unknown]
  - Obesity [Unknown]
